FAERS Safety Report 8247728-3 (Version None)
Quarter: 2012Q1

REPORT INFORMATION
  Report Type: 
  Country: None (occurrence: None)
  Receive Date: 20120330
  Receipt Date: 20120326
  Transmission Date: 20120608
  Serious: Yes (Hospitalization)
  Sender: FDA-Public Use
  Company Number: US-GLAXOSMITHKLINE-A0961421A

PATIENT
  Sex: Female

DRUGS (1)
  1. LAMICTAL [Suspect]
     Indication: CONVULSION
     Dosage: 400MG TWICE PER DAY
     Route: 048

REACTIONS (9)
  - APHASIA [None]
  - RESPIRATORY ARREST [None]
  - SPEECH DISORDER [None]
  - CONFUSIONAL STATE [None]
  - MENTAL IMPAIRMENT [None]
  - ANXIETY [None]
  - GRAND MAL CONVULSION [None]
  - DRUG LEVEL DECREASED [None]
  - PRODUCT QUALITY ISSUE [None]
